FAERS Safety Report 9528356 (Version 1)
Quarter: 2013Q1

REPORT INFORMATION
  Report Type: Spontaneous
  Country: US (occurrence: None)
  Receive Date: 20130326
  Receipt Date: 20130326
  Transmission Date: 20140127
  Serious: No
  Sender: FDA-Public Use
  Company Number: IS.NR.1971_SP

PATIENT
  Sex: 0

DRUGS (1)
  1. CIPROFLOXACIN [Suspect]
     Route: 042

REACTIONS (2)
  - Rash [None]
  - Pruritus [None]
